FAERS Safety Report 25645540 (Version 1)
Quarter: 2025Q3

REPORT INFORMATION
  Report Type: Spontaneous
  Country: US (occurrence: None)
  Receive Date: 20250804
  Receipt Date: 20250804
  Transmission Date: 20251021
  Serious: Yes (Hospitalization)
  Sender: FDA-CTU
  Company Number: None

PATIENT
  Age: 19 Year
  Sex: Male
  Weight: 56.7 kg

DRUGS (2)
  1. HERBALS\TETRAHYDROCANNABIPHOROL [Suspect]
     Active Substance: HERBALS\TETRAHYDROCANNABIPHOROL
     Indication: Anxiety
     Dates: start: 20250723, end: 20250726
  2. HERBALS\MITRAGYNINE [Suspect]
     Active Substance: HERBALS\MITRAGYNINE

REACTIONS (6)
  - Anxiety [None]
  - Insomnia [None]
  - Confusional state [None]
  - Decreased appetite [None]
  - Tremor [None]
  - Schizophrenia [None]

NARRATIVE: CASE EVENT DATE: 20250726
